FAERS Safety Report 23179013 (Version 1)
Quarter: 2023Q4

REPORT INFORMATION
  Report Type: Spontaneous
  Country: CA (occurrence: CA)
  Receive Date: 20231113
  Receipt Date: 20231113
  Transmission Date: 20240109
  Serious: Yes (Hospitalization)
  Sender: FDA-Public Use
  Company Number: CA-PFIZER INC-202300358905

PATIENT
  Age: 3 Year
  Sex: Female
  Weight: 12 kg

DRUGS (8)
  1. ATIVAN [Suspect]
     Active Substance: LORAZEPAM
     Indication: Seizure
     Dosage: 1.2 MG, SINGLE
     Route: 042
  2. MIDAZOLAM [Suspect]
     Active Substance: MIDAZOLAM
     Indication: Seizure
     Dosage: 2.4 MG
  3. ACETAMINOPHEN [Concomitant]
     Active Substance: ACETAMINOPHEN
     Dosage: UNK
  4. CEFTRIAXONE [Concomitant]
     Active Substance: CEFTRIAXONE\CEFTRIAXONE SODIUM
     Dosage: UNK
  5. FENTANYL [Concomitant]
     Active Substance: FENTANYL\FENTANYL CITRATE
     Dosage: UNK
  6. KETAMINE [Concomitant]
     Active Substance: KETAMINE
     Dosage: UNK
  7. PANTOPRAZOLE [Concomitant]
     Active Substance: PANTOPRAZOLE
     Dosage: UNK
  8. ROCURONIUM [Concomitant]
     Active Substance: ROCURONIUM BROMIDE
     Dosage: UNK

REACTIONS (8)
  - Increased bronchial secretion [Recovered/Resolved]
  - Influenza A virus test positive [Recovered/Resolved]
  - Respiratory distress [Recovered/Resolved]
  - Off label use [Unknown]
  - Drug ineffective for unapproved indication [Recovered/Resolved]
  - Status epilepticus [Recovered/Resolved]
  - Drug ineffective [Recovered/Resolved]
  - Off label use [Unknown]
